FAERS Safety Report 5092044-4 (Version None)
Quarter: 2006Q3

REPORT INFORMATION
  Report Type: 
  Country: None (occurrence: None)
  Receive Date: 20060825
  Receipt Date: 20060814
  Transmission Date: 20061208
  Serious: Yes (Hospitalization)
  Sender: FDA-Public Use
  Company Number: CIP06001019

PATIENT
  Age: 77 Year
  Sex: Female

DRUGS (2)
  1. ACTONEL [Suspect]
     Dosage: 35 MG ONCE WEEKLY, ORAL
     Route: 048
     Dates: start: 20060303, end: 20060401
  2. DRUG NOS () [Suspect]
     Dates: end: 20060701

REACTIONS (3)
  - CHEST PAIN [None]
  - GASTRIC DISORDER [None]
  - OESOPHAGEAL PAIN [None]
